FAERS Safety Report 9408345 (Version 1)
Quarter: 2013Q3

REPORT INFORMATION
  Report Type: Spontaneous
  Country: ES (occurrence: AT)
  Receive Date: 20130718
  Receipt Date: 20130718
  Transmission Date: 20140515
  Serious: Yes (Other)
  Sender: FDA-Public Use
  Company Number: AT-FRI-1000046861

PATIENT
  Age: 66 Year
  Sex: Female
  Weight: 136 kg

DRUGS (3)
  1. ACLIDINIUM [Suspect]
     Route: 055
  2. SERETIDE DISCUS [Concomitant]
     Dosage: 2 DF
  3. BERODUAL [Concomitant]

REACTIONS (1)
  - Epistaxis [Recovered/Resolved]
